FAERS Safety Report 8889706 (Version 2)
Quarter: 2012Q4

REPORT INFORMATION
  Report Type: 
  Country: US (occurrence: US)
  Receive Date: 20121107
  Receipt Date: 20121130
  Transmission Date: 20130627
  Serious: Yes (Hospitalization)
  Sender: FDA-Public Use
  Company Number: US-VIROPHARMA INCORPORATED-20121029CINRY3565

PATIENT
  Age: 61 None
  Sex: Female
  Weight: 88.08 kg

DRUGS (5)
  1. CINRYZE (C1 ESTERASE INHIBITOR (HUMAN)) [Suspect]
     Indication: HEREDITARY ANGIOEDEMA
     Dates: start: 201209
  2. DANAZOL [Concomitant]
     Indication: HEREDITARY ANGIOEDEMA
     Route: 065
     Dates: start: 201210
  3. BERINERT [Concomitant]
     Indication: HEREDITARY ANGIOEDEMA
  4. EPIPEN [Concomitant]
     Indication: ALLERGY TO ARTHROPOD STING
  5. HYDROCHLOROTHIAZIDE [Concomitant]
     Indication: HYPERTENSION
     Route: 065

REACTIONS (3)
  - Ependymoma benign [Recovered/Resolved]
  - Surgery [Recovered/Resolved]
  - Inappropriate schedule of drug administration [Not Recovered/Not Resolved]
